FAERS Safety Report 5799633-X (Version None)
Quarter: 2008Q3

REPORT INFORMATION
  Report Type: 
  Country: None (occurrence: None)
  Receive Date: 20080703
  Receipt Date: 20080703
  Transmission Date: 20090109
  Serious: Yes (Other)
  Sender: FDA-Public Use
  Company Number: None

PATIENT
  Age: 56 Year
  Sex: Female
  Weight: 72.12 kg

DRUGS (1)
  1. HEPARIN [Suspect]
     Indication: INTRAVENOUS CATHETER MANAGEMENT
     Dosage: 2000 UNITS -2ML- WEEKLY IV
     Route: 042
     Dates: start: 20071212, end: 20080702

REACTIONS (5)
  - ABDOMINAL DISCOMFORT [None]
  - EYE IRRITATION [None]
  - HEADACHE [None]
  - OEDEMA PERIPHERAL [None]
  - ORAL DISCOMFORT [None]
